FAERS Safety Report 4991720-9 (Version None)
Quarter: 2006Q2

REPORT INFORMATION
  Report Type: 
  Country: None (occurrence: None)
  Receive Date: 20060504
  Receipt Date: 20060424
  Transmission Date: 20061013
  Serious: Yes (Hospitalization)
  Sender: FDA-Public Use
  Company Number: SE-GLAXOSMITHKLINE-B0422016A

PATIENT
  Age: 33 Year
  Sex: Female

DRUGS (1)
  1. SEROXAT [Suspect]
     Dosage: 20MG PER DAY
     Route: 048
     Dates: start: 19920101

REACTIONS (2)
  - DRUG EXPOSURE DURING PREGNANCY [None]
  - INTRA-UTERINE DEATH [None]
